FAERS Safety Report 8818994 (Version 1)
Quarter: 2012Q4

REPORT INFORMATION
  Report Type: 
  Country: US (occurrence: US)
  Receive Date: 20121001
  Receipt Date: 20121001
  Transmission Date: 20130627
  Serious: No
  Sender: FDA-Public Use
  Company Number: PHEH2012US019000

PATIENT
  Age: 58 Year
  Sex: Female

DRUGS (2)
  1. TASIGNA [Suspect]
     Indication: CHRONIC MYELOID LEUKAEMIA
     Dosage: 300 mg, BID
     Route: 048
     Dates: start: 20120814, end: 20120912
  2. LEVOTHYROXINE [Concomitant]

REACTIONS (3)
  - Eye swelling [Recovering/Resolving]
  - Oedema peripheral [Recovering/Resolving]
  - Gait disturbance [Recovering/Resolving]
